FAERS Safety Report 4447403-7 (Version None)
Quarter: 2004Q3

REPORT INFORMATION
  Report Type: 
  Country: None (occurrence: None)
  Receive Date: 20040823
  Receipt Date: 20040720
  Transmission Date: 20050211
  Serious: No
  Sender: FDA-Public Use
  Company Number: PHEH2004US07808

PATIENT
  Age: 75 Year
  Sex: Female

DRUGS (3)
  1. ZELNORM [Suspect]
     Indication: IRRITABLE BOWEL SYNDROME
     Dosage: 6 MG BID ORAL
     Route: 048
  2. MIRALAX [Concomitant]
  3. STOOL SOFTNER [Concomitant]

REACTIONS (4)
  - ASTHENIA [None]
  - DRUG INEFFECTIVE [None]
  - MALAISE [None]
  - NERVOUSNESS [None]
